FAERS Safety Report 21840390 (Version 2)
Quarter: 2023Q2

REPORT INFORMATION
  Report Type: Spontaneous
  Country: US (occurrence: US)
  Receive Date: 20230110
  Receipt Date: 20230522
  Transmission Date: 20230722
  Serious: No
  Sender: FDA-Public Use
  Company Number: US-LEO Pharma-348273

PATIENT
  Age: 59 Year
  Sex: Female

DRUGS (13)
  1. SERTRALINE [Concomitant]
     Active Substance: SERTRALINE HYDROCHLORIDE
     Indication: Product used for unknown indication
  2. LAMOTRIGINE [Concomitant]
     Active Substance: LAMOTRIGINE
     Indication: Product used for unknown indication
  3. VENLAFAXINE [Concomitant]
     Active Substance: VENLAFAXINE HYDROCHLORIDE
     Indication: Product used for unknown indication
  4. DONEPEZIL [Concomitant]
     Active Substance: DONEPEZIL
     Indication: Product used for unknown indication
  5. ADBRY [Suspect]
     Active Substance: TRALOKINUMAB-LDRM
     Indication: Eczema
     Dosage: 4 INJECTIONS FOR THE INITIAL DOSE
     Route: 058
  6. ADBRY [Suspect]
     Active Substance: TRALOKINUMAB-LDRM
     Indication: Eczema
     Dosage: 4 INJECTIONS FOR THE INITIAL DOSE
     Route: 058
  7. ADBRY [Suspect]
     Active Substance: TRALOKINUMAB-LDRM
     Indication: Eczema
     Dosage: 4 INJECTIONS FOR THE INITIAL DOSE
     Route: 058
  8. ADBRY [Suspect]
     Active Substance: TRALOKINUMAB-LDRM
     Indication: Eczema
     Dosage: 4 INJECTIONS FOR THE INITIAL DOSE
     Route: 058
  9. ADBRY [Suspect]
     Active Substance: TRALOKINUMAB-LDRM
     Indication: Eczema
     Dosage: 2 INJECTIONS EVERY TWO WEEKS
     Route: 058
  10. ADBRY [Suspect]
     Active Substance: TRALOKINUMAB-LDRM
     Indication: Eczema
     Dosage: 2 INJECTIONS EVERY TWO WEEKS
     Route: 058
  11. ADBRY [Suspect]
     Active Substance: TRALOKINUMAB-LDRM
     Indication: Eczema
     Dosage: 2 INJECTIONS EVERY TWO WEEKS
     Route: 058
  12. ADBRY [Suspect]
     Active Substance: TRALOKINUMAB-LDRM
     Indication: Eczema
     Dosage: 2 INJECTIONS EVERY TWO WEEKS
     Route: 058
  13. LITHIUM CARBONATE [Concomitant]
     Active Substance: LITHIUM CARBONATE
     Indication: Product used for unknown indication

REACTIONS (2)
  - Eczema [Not Recovered/Not Resolved]
  - Skin fissures [Not Recovered/Not Resolved]
